FAERS Safety Report 9988998 (Version 2)
Quarter: 2014Q1

REPORT INFORMATION
  Report Type: Report from Study
  Country: US (occurrence: US)
  Receive Date: 20140310
  Receipt Date: 20140310
  Transmission Date: 20141002
  Serious: Yes (Hospitalization)
  Sender: FDA-Public Use
  Company Number: US-ABBVIE-13P-163-1125301-00

PATIENT
  Sex: Female
  Weight: 42.68 kg

DRUGS (6)
  1. HUMIRA [Suspect]
     Indication: CROHN^S DISEASE
     Route: 058
     Dates: end: 2010
  2. HUMIRA [Suspect]
     Indication: CROHN^S DISEASE
     Route: 058
     Dates: end: 201206
  3. HUMIRA [Suspect]
     Dosage: ONLY TOOK LOADING DOSE
     Route: 058
     Dates: start: 201301, end: 201301
  4. IMURAN [Concomitant]
     Indication: CROHN^S DISEASE
     Dates: end: 201207
  5. IMURAN [Concomitant]
     Dates: start: 201306
  6. STEROIDS [Concomitant]
     Indication: PRODUCT USED FOR UNKNOWN INDICATION

REACTIONS (9)
  - Crohn^s disease [Not Recovered/Not Resolved]
  - Infectious mononucleosis [Recovered/Resolved]
  - Injection site pain [Recovered/Resolved]
  - Mass [Not Recovered/Not Resolved]
  - Anxiety [Unknown]
  - Crohn^s disease [Not Recovered/Not Resolved]
  - Epstein-Barr virus infection [Unknown]
  - Lymphadenopathy [Not Recovered/Not Resolved]
  - Erythema nodosum [Not Recovered/Not Resolved]
